FAERS Safety Report 9439357 (Version 1)
Quarter: 2013Q3

REPORT INFORMATION
  Report Type: Spontaneous
  Country: US (occurrence: US)
  Receive Date: 20130805
  Receipt Date: 20130805
  Transmission Date: 20140515
  Serious: No
  Sender: FDA-Public Use
  Company Number: US-009507513-1307IND007585

PATIENT
  Sex: Male

DRUGS (1)
  1. SAPHRIS [Suspect]
     Indication: BIPOLAR II DISORDER

REACTIONS (3)
  - Initial insomnia [Unknown]
  - Restless legs syndrome [Unknown]
  - Akathisia [Unknown]
